FAERS Safety Report 11500452 (Version 1)
Quarter: 2015Q3

REPORT INFORMATION
  Report Type: Spontaneous
  Country: IT (occurrence: IT)
  Receive Date: 20150914
  Receipt Date: 20150914
  Transmission Date: 20151125
  Serious: Yes (Disabling)
  Sender: FDA-Public Use
  Company Number: IT-EISAI MEDICAL RESEARCH-EC-2015-010374

PATIENT
  Age: 89 Year
  Sex: Female
  Weight: 65 kg

DRUGS (6)
  1. RANITADINA SALF [Concomitant]
     Indication: PREMEDICATION
     Route: 042
  2. ONDANSETRONE HIKMA [Concomitant]
     Active Substance: ONDANSETRON
     Indication: PREMEDICATION
     Route: 042
  3. HALAVEN [Suspect]
     Active Substance: ERIBULIN MESYLATE
     Indication: BREAST CANCER FEMALE
     Route: 041
     Dates: start: 20150311, end: 20150624
  4. DESAMETHASONE FOSFATO HOSPIRA [Concomitant]
     Indication: PREMEDICATION
     Route: 042
  5. AFINITOR [Concomitant]
     Active Substance: EVEROLIMUS
     Indication: BREAST CANCER
     Route: 048
     Dates: start: 20140206, end: 20150331
  6. HALAVEN [Suspect]
     Active Substance: ERIBULIN MESYLATE
     Route: 041
     Dates: start: 20150701, end: 20150729

REACTIONS (1)
  - Asthenia [Recovering/Resolving]

NARRATIVE: CASE EVENT DATE: 20150603
